FAERS Safety Report 12685164 (Version 1)
Quarter: 2016Q3

REPORT INFORMATION
  Report Type: Spontaneous
  Country: US (occurrence: US)
  Receive Date: 20160825
  Receipt Date: 20160825
  Transmission Date: 20161109
  Serious: Yes (Other)
  Sender: FDA-Public Use
  Company Number: US-INDIVIOR LIMITED-INDV-093944-2016

PATIENT
  Age: 30 Year
  Sex: Female

DRUGS (1)
  1. SUBOXONE [Suspect]
     Active Substance: BUPRENORPHINE HYDROCHLORIDE\NALOXONE HYDROCHLORIDE
     Indication: DRUG DEPENDENCE
     Dosage: UNK, ONCE
     Route: 060
     Dates: start: 201608, end: 201608

REACTIONS (3)
  - Substance abuse [Recovered/Resolved]
  - Seizure [Recovered/Resolved]
  - Drug screen positive [Recovered/Resolved]

NARRATIVE: CASE EVENT DATE: 201608
